FAERS Safety Report 12234027 (Version 1)
Quarter: 2016Q2

REPORT INFORMATION
  Report Type: Spontaneous
  Country: US (occurrence: None)
  Receive Date: 20160401
  Receipt Date: 20160401
  Transmission Date: 20160815
  Serious: Yes (Other)
  Sender: FDA-Public Use
  Company Number: None

PATIENT
  Age: 72 Year
  Sex: Male
  Weight: 82.6 kg

DRUGS (1)
  1. PEMBROLIZUMAB, 2 MG/KG [Suspect]
     Active Substance: PEMBROLIZUMAB
     Indication: METASTATIC MALIGNANT MELANOMA
     Route: 042
     Dates: start: 20140715

REACTIONS (3)
  - Anaemia [None]
  - Thrombocytopenia [None]
  - Myelodysplastic syndrome [None]

NARRATIVE: CASE EVENT DATE: 20160303
